FAERS Safety Report 11934149 (Version 1)
Quarter: 2016Q1

REPORT INFORMATION
  Report Type: Spontaneous
  Country: US (occurrence: US)
  Receive Date: 20160121
  Receipt Date: 20160121
  Transmission Date: 20160526
  Serious: No
  Sender: FDA-Public Use
  Company Number: US-PERRIGO-15US000144

PATIENT
  Age: 51 Year
  Sex: Female
  Weight: 78.5 kg

DRUGS (2)
  1. BAYER ASPIRIN [Concomitant]
     Active Substance: ASPIRIN
     Indication: STENT PLACEMENT
     Dosage: UNK
     Route: 065
  2. ACETAMINOPHEN\CAFFEINE\SALICYLATE [Suspect]
     Active Substance: ACETAMINOPHEN\CAFFEINE\SALICYLIC ACID
     Indication: MIGRAINE
     Dosage: 2 TABLETS, PRN
     Route: 048
     Dates: start: 201408, end: 20150104

REACTIONS (2)
  - No adverse event [Recovered/Resolved]
  - Inappropriate schedule of drug administration [Recovered/Resolved]

NARRATIVE: CASE EVENT DATE: 201408
